FAERS Safety Report 13966288 (Version 1)
Quarter: 2017Q3

REPORT INFORMATION
  Report Type: Spontaneous
  Country: US (occurrence: US)
  Receive Date: 20170913
  Receipt Date: 20170913
  Transmission Date: 20171128
  Serious: No
  Sender: FDA-Public Use
  Company Number: US-PFIZER INC-3222821

PATIENT
  Sex: Female

DRUGS (1)
  1. BUPIVACAINE HYDROCHLORIDE/EPINEPHRINE [Suspect]
     Active Substance: BUPIVACAINE HYDROCHLORIDE\EPINEPHRINE
     Dosage: UNK

REACTIONS (6)
  - Accidental exposure to product [Recovered/Resolved]
  - Product closure issue [Recovered/Resolved]
  - Wrong technique in product usage process [Recovered/Resolved]
  - Eye injury [Recovered/Resolved]
  - Hypoaesthesia eye [Recovered/Resolved]
  - Accident at work [Recovered/Resolved]

NARRATIVE: CASE EVENT DATE: 20160318
